FAERS Safety Report 6215733-4 (Version None)
Quarter: 2009Q2

REPORT INFORMATION
  Report Type: 
  Country: None (occurrence: None)
  Receive Date: 20090603
  Receipt Date: 20090528
  Transmission Date: 20091009
  Serious: Yes (Hospitalization)
  Sender: FDA-Public Use
  Company Number: SPV1-2009-01081

PATIENT
  Age: 62 Year
  Sex: Female

DRUGS (3)
  1. FOSRENOL [Suspect]
     Dosage: 1500 MG, ORAL
     Route: 048
     Dates: start: 20090507, end: 20090516
  2. CALTAN (CALCIUM CARBONATE) [Concomitant]
  3. PHOSBLOCK (SEVELAMER HYDROCHLORIDE) [Concomitant]

REACTIONS (1)
  - GASTROINTESTINAL PERFORATION [None]
